FAERS Safety Report 9018136 (Version 1)
Quarter: 2013Q1

REPORT INFORMATION
  Report Type: Spontaneous
  Country: US (occurrence: None)
  Receive Date: 20130110
  Receipt Date: 20130110
  Transmission Date: 20140127
  Serious: Yes (Other)
  Sender: FDA-Public Use
  Company Number: None

PATIENT
  Age: 45 Year
  Sex: Male

DRUGS (2)
  1. AUGMENTIN [Suspect]
     Route: 048
     Dates: start: 20070416, end: 20070418
  2. CEFAZOLIN [Suspect]
     Dates: start: 20070416, end: 20070416

REACTIONS (12)
  - Drug-induced liver injury [None]
  - Pyrexia [None]
  - Jaundice [None]
  - Chromaturia [None]
  - Nausea [None]
  - Fatigue [None]
  - Decreased appetite [None]
  - Hepatic steatosis [None]
  - Hepatotoxicity [None]
  - Aspartate aminotransferase increased [None]
  - Alanine aminotransferase increased [None]
  - Blood alkaline phosphatase increased [None]
